FAERS Safety Report 6539196-4 (Version None)
Quarter: 2010Q1

REPORT INFORMATION
  Report Type: 
  Country: None (occurrence: None)
  Receive Date: 20100115
  Receipt Date: 20091224
  Transmission Date: 20100710
  Serious: Yes (Other)
  Sender: FDA-Public Use
  Company Number: US-PFIZER INC-2009309659

PATIENT
  Age: 33 Year
  Sex: Female

DRUGS (6)
  1. SELZENTRY [Suspect]
     Indication: HIV INFECTION
     Dosage: FREQUENCY: 2X/DAY,
     Route: 048
     Dates: start: 20090901
  2. CAPTOPRIL [Concomitant]
     Indication: HYPERTENSION
     Dosage: UNK
  3. SULFAMETHOXAZOLE AND TRIMETHOPRIM [Concomitant]
     Dosage: 400 MG, 2X/DAY
  4. ISENTRESS [Concomitant]
     Dosage: FREQUENCY: 2X/DAY,
  5. PREZISTA [Concomitant]
     Dosage: FREQUENCY: 2X/DAY,
  6. RITONAVIR [Concomitant]
     Dosage: 100 MG, UNK

REACTIONS (4)
  - ATRIOVENTRICULAR BLOCK FIRST DEGREE [None]
  - BUNDLE BRANCH BLOCK RIGHT [None]
  - ELECTROCARDIOGRAM T WAVE INVERSION [None]
  - ISCHAEMIA [None]
